FAERS Safety Report 10062286 (Version 1)
Quarter: 2014Q2

REPORT INFORMATION
  Report Type: Spontaneous
  Country: US (occurrence: US)
  Receive Date: 20140407
  Receipt Date: 20140407
  Transmission Date: 20141212
  Serious: No
  Sender: FDA-Public Use
  Company Number: US-GLAXOSMITHKLINE-A1053567A

PATIENT
  Age: 45 Year
  Sex: Female

DRUGS (9)
  1. BENLYSTA [Suspect]
     Indication: SYSTEMIC LUPUS ERYTHEMATOSUS
     Route: 065
     Dates: start: 20131113
  2. REQUIP XL [Concomitant]
  3. ESTRADIOL [Concomitant]
  4. OXYMORPHONE [Concomitant]
  5. METHADONE [Concomitant]
  6. HYDROCODONE [Concomitant]
  7. TOPIRAMATE [Concomitant]
  8. DICLOFENAC [Concomitant]
  9. PROCHLORPERAZINE [Concomitant]

REACTIONS (2)
  - Nausea [Not Recovered/Not Resolved]
  - Insomnia [Unknown]
